FAERS Safety Report 8278830-8 (Version None)
Quarter: 2012Q2

REPORT INFORMATION
  Report Type: 
  Country: None (occurrence: None)
  Receive Date: 20120412
  Receipt Date: 20111104
  Transmission Date: 20120825
  Serious: No
  Sender: FDA-Public Use
  Company Number: US-ASTRAZENECA-2011SE67141

PATIENT
  Sex: Female
  Weight: 66.7 kg

DRUGS (3)
  1. VALTREX [Concomitant]
     Indication: ORAL HERPES
  2. NEXIUM [Suspect]
     Route: 048
  3. PREMARIN [Concomitant]
     Indication: VULVOVAGINAL DRYNESS

REACTIONS (3)
  - VULVOVAGINAL DRYNESS [None]
  - ORAL HERPES [None]
  - ABDOMINAL PAIN [None]
